FAERS Safety Report 25539854 (Version 1)
Quarter: 2025Q3

REPORT INFORMATION
  Report Type: Spontaneous
  Country: EU (occurrence: EU)
  Receive Date: 20250710
  Receipt Date: 20250710
  Transmission Date: 20251020
  Serious: Yes (Hospitalization, Other)
  Sender: JUBILANT
  Company Number: None

PATIENT
  Age: 1 Day
  Sex: Female
  Weight: 3.7 kg

DRUGS (1)
  1. QUETIAPINE FUMARATE [Suspect]
     Active Substance: QUETIAPINE FUMARATE
     Indication: Product used for unknown indication
     Dosage: 25 MG, ONCE PER DAY
     Route: 048
     Dates: start: 20250101

REACTIONS (2)
  - Infantile apnoea [Recovered/Resolved]
  - Maternal exposure during pregnancy [Unknown]
